FAERS Safety Report 6585092-6 (Version None)
Quarter: 2010Q1

REPORT INFORMATION
  Report Type: 
  Country: None (occurrence: None)
  Receive Date: 20100217
  Receipt Date: 20100205
  Transmission Date: 20100710
  Serious: Yes (Other)
  Sender: FDA-Public Use
  Company Number: US-PFIZER INC-2010019093

PATIENT
  Sex: Female
  Weight: 72.574 kg

DRUGS (12)
  1. RELPAX [Suspect]
     Indication: MIGRAINE
     Dosage: UNK
     Dates: end: 20090101
  2. LORAZEPAM [Concomitant]
     Dosage: UNK
  3. DIPHENOXYLATE [Concomitant]
     Dosage: UNK
  4. GALANTAMINE HYDROBROMIDE [Concomitant]
     Dosage: UNK
  5. BACLOFEN [Concomitant]
     Dosage: UNK
  6. TRIAMTERENE [Concomitant]
     Dosage: UNK
  7. SERTRALINE [Concomitant]
     Dosage: UNK
  8. GABAPENTIN [Concomitant]
     Dosage: 600 MG, UNK
  9. HYDROCODONE [Concomitant]
     Dosage: 10/500 AS NEEDED
  10. PROMETHAZINE [Concomitant]
     Indication: NAUSEA
     Dosage: UNK
  11. DICYCLOMINE [Concomitant]
     Dosage: 20 MG, UNK
  12. MILNACIPRAN [Concomitant]
     Dosage: 50 MG, UNK

REACTIONS (4)
  - BONE DISORDER [None]
  - ELBOW OPERATION [None]
  - HIP ARTHROPLASTY [None]
  - MIGRAINE [None]
